FAERS Safety Report 13090601 (Version 1)
Quarter: 2017Q1

REPORT INFORMATION
  Report Type: Spontaneous
  Country: US (occurrence: US)
  Receive Date: 20170105
  Receipt Date: 20170105
  Transmission Date: 20170428
  Serious: Yes (Other)
  Sender: FDA-Public Use
  Company Number: US-HALOZYME THERAPEUTICS, INC.-2016-US-HYL-00921

PATIENT
  Age: 44 Year
  Sex: Female

DRUGS (7)
  1. HYLENEX RECOMBINANT [Suspect]
     Active Substance: HYALURONIDASE (HUMAN RECOMBINANT)
     Dosage: 150 MG, UNK
     Dates: start: 20160617
  2. JUVEDERM [Suspect]
     Active Substance: HYALURONIC ACID
     Dosage: UNK
  3. JUVEDERM VOLUMA XC [Suspect]
     Active Substance: HYALURONIC ACID\LIDOCAINE HYDROCHLORIDE
     Dosage: UNK
  4. HYLENEX RECOMBINANT [Suspect]
     Active Substance: HYALURONIDASE (HUMAN RECOMBINANT)
     Dosage: 300 MG, UNK
  5. HYLENEX RECOMBINANT [Suspect]
     Active Substance: HYALURONIDASE (HUMAN RECOMBINANT)
     Dosage: 300 MG, UNK
  6. HYLENEX RECOMBINANT [Suspect]
     Active Substance: HYALURONIDASE (HUMAN RECOMBINANT)
     Dosage: 150 MG, UNK
  7. RESTYLANE                          /00567501/ [Suspect]
     Active Substance: HYALURONIC ACID

REACTIONS (4)
  - Angioedema [Not Recovered/Not Resolved]
  - Dysphonia [Not Recovered/Not Resolved]
  - Anxiety [Not Recovered/Not Resolved]
  - Induration [Not Recovered/Not Resolved]

NARRATIVE: CASE EVENT DATE: 201606
